FAERS Safety Report 8288910-9 (Version None)
Quarter: 2012Q2

REPORT INFORMATION
  Report Type: 
  Country: None (occurrence: None)
  Receive Date: 20120412
  Receipt Date: 20120328
  Transmission Date: 20120825
  Serious: Yes (Hospitalization)
  Sender: FDA-Public Use
  Company Number: B0792209A

PATIENT
  Sex: Female

DRUGS (6)
  1. RAMIPRIL [Concomitant]
  2. DIGOXIN [Suspect]
     Indication: PRODUCT USED FOR UNKNOWN INDICATION
     Dosage: .125 MG / PER DAY / ORAL
     Route: 048
     Dates: start: 20100101, end: 20120326
  3. FUROSEMIDE [Concomitant]
  4. CARVEDILOL [Concomitant]
  5. ATORVASTATIN CALCIUM [Concomitant]
  6. TICLOPIDINE HCL [Concomitant]

REACTIONS (2)
  - CARDIOACTIVE DRUG LEVEL INCREASED [None]
  - ELECTROCARDIOGRAM REPOLARISATION ABNORMALITY [None]
